FAERS Safety Report 4551262-1 (Version None)
Quarter: 2005Q1

REPORT INFORMATION
  Report Type: 
  Country: None (occurrence: None)
  Receive Date: 20050110
  Receipt Date: 20041227
  Transmission Date: 20050727
  Serious: No
  Sender: FDA-Public Use
  Company Number: DEU-2004-0001088

PATIENT
  Age: 55 Year

DRUGS (2)
  1. MORPHINE SULFATE [Suspect]
     Indication: PAIN
     Dosage: 210 MG, BID, ORAL
     Route: 048
     Dates: start: 20040201
  2. DURAGESIC [Suspect]

REACTIONS (1)
  - GYNAECOMASTIA [None]
